FAERS Safety Report 8695565 (Version 2)
Quarter: 2013Q4

REPORT INFORMATION
  Report Type: Spontaneous
  Country: US (occurrence: US)
  Receive Date: 20120731
  Receipt Date: 20131106
  Transmission Date: 20140711
  Serious: Yes (Hospitalization, Other)
  Sender: FDA-Public Use
  Company Number: US-009507513-1207USA010483

PATIENT
  Sex: Female

DRUGS (13)
  1. ZOCOR [Suspect]
     Route: 048
  2. LOSARTAN POTASSIUM AND HYDROCHLOROTHIAZIDE TABLETS [Suspect]
     Route: 048
  3. METFORMIN [Suspect]
  4. ATORVASTATIN [Suspect]
     Route: 048
  5. PLAGREL [Suspect]
  6. ZANTAC [Suspect]
  7. CARDIZEM [Suspect]
     Dosage: 60 MG, UNK
  8. AAS [Suspect]
  9. RENITEC (ENALAPRIL MALEATE) (5 MILLIGRAM, TABLETS) (ENALAPRIL MALEATE) [Suspect]
  10. ASSERT [Suspect]
  11. AMATO [Suspect]
  12. CARVEDILOL [Suspect]
  13. OMEPRAZOLE [Suspect]

REACTIONS (12)
  - Speech disorder [Unknown]
  - Blood cholesterol increased [Unknown]
  - Dyspnoea [Unknown]
  - Dry mouth [Unknown]
  - Venous occlusion [Unknown]
  - Blood pressure inadequately controlled [Unknown]
  - Insomnia [Unknown]
  - Fatigue [Unknown]
  - Diabetes mellitus [Unknown]
  - Osteoarthritis [Unknown]
  - Chest pain [Unknown]
  - Malaise [Unknown]
